FAERS Safety Report 23023905 (Version 1)
Quarter: 2023Q4

REPORT INFORMATION
  Report Type: Spontaneous
  Country: DE (occurrence: DE)
  Receive Date: 20231003
  Receipt Date: 20231003
  Transmission Date: 20240109
  Serious: Yes (Other)
  Sender: FDA-Public Use
  Company Number: DE-BAYER-2023A137023

PATIENT
  Sex: Female

DRUGS (1)
  1. XARELTO [Suspect]
     Active Substance: RIVAROXABAN
     Indication: Product used for unknown indication
     Dosage: 20 MG
     Route: 048
     Dates: start: 2015

REACTIONS (8)
  - Atrial fibrillation [Unknown]
  - Epistaxis [Unknown]
  - Fall [Unknown]
  - Hypersensitivity [Unknown]
  - Ocular hyperaemia [Unknown]
  - Skin haemorrhage [Unknown]
  - Rash macular [Unknown]
  - Drug intolerance [Unknown]
